FAERS Safety Report 25094604 (Version 1)
Quarter: 2025Q1

REPORT INFORMATION
  Report Type: Spontaneous
  Country: US (occurrence: None)
  Receive Date: 20250318
  Receipt Date: 20250318
  Transmission Date: 20250409
  Serious: Yes (Disabling, Other)
  Sender: FDA-CTU
  Company Number: None

PATIENT
  Age: 30 Year
  Sex: Female
  Weight: 58.97 kg

DRUGS (1)
  1. HERBALS\MITRAGYNINE [Suspect]
     Active Substance: HERBALS\MITRAGYNINE
     Route: 048

REACTIONS (6)
  - Dizziness [None]
  - Vertigo [None]
  - Nausea [None]
  - Vomiting [None]
  - Hypoaesthesia oral [None]
  - Product formulation issue [None]

NARRATIVE: CASE EVENT DATE: 20250312
